FAERS Safety Report 7879832-3 (Version None)
Quarter: 2011Q4

REPORT INFORMATION
  Report Type: 
  Country: None (occurrence: None)
  Receive Date: 20111101
  Receipt Date: 20111024
  Transmission Date: 20120403
  Serious: Yes (Life-Threatening)
  Sender: FDA-Public Use
  Company Number: JP-CELGENEUS-087-21880-11030183

PATIENT
  Sex: Male

DRUGS (19)
  1. FAMOTIDINE [Concomitant]
     Indication: PROPHYLAXIS
     Dosage: 20-40MG
     Route: 041
     Dates: start: 20110218
  2. REVLIMID [Suspect]
     Dosage: 10 MILLIGRAM
     Route: 048
     Dates: start: 20110131, end: 20110209
  3. OMEGACIN [Concomitant]
     Dosage: 1.2 GRAM
     Route: 041
     Dates: start: 20110224
  4. HYDROXOCOBALAMIN [Concomitant]
     Indication: POST HERPETIC NEURALGIA
     Dosage: 6 TABLET
     Route: 048
     Dates: start: 20110119, end: 20110211
  5. MAGNESIUM OXIDE [Concomitant]
     Dosage: .5 GRAM
     Route: 048
     Dates: start: 20110119, end: 20110211
  6. ALENDRONATE SODIUM [Concomitant]
     Indication: PROPHYLAXIS
     Dosage: 35 MILLIGRAM
     Route: 048
     Dates: start: 20110119, end: 20110211
  7. ACETAMINOPHEN [Concomitant]
     Dosage: 1800 MILLIGRAM
     Route: 048
     Dates: start: 20110119, end: 20110211
  8. MORPHINE HCL ELIXIR [Concomitant]
     Dosage: 24-48MG
     Route: 041
     Dates: start: 20110212
  9. REVLIMID [Suspect]
     Indication: MULTIPLE MYELOMA
     Dosage: 10 MILLIGRAM
     Route: 048
     Dates: start: 20110119, end: 20110126
  10. LENADEX [Suspect]
     Dosage: 10 MILLIGRAM
     Route: 048
     Dates: start: 20110131, end: 20110209
  11. LENADEX [Suspect]
     Indication: MULTIPLE MYELOMA
     Dosage: 40 MILLIGRAM
     Route: 048
     Dates: start: 20110119, end: 20110207
  12. FAMOTIDINE D [Concomitant]
     Indication: PROPHYLAXIS
     Dosage: 40 MILLIGRAM
     Route: 048
     Dates: start: 20110119, end: 20110211
  13. ZOLOFT [Concomitant]
     Dosage: 50 MILLIGRAM
     Route: 048
     Dates: start: 20110119, end: 20110211
  14. FENTANYL-100 [Concomitant]
     Dosage: 4.2 MILLIGRAM
     Route: 062
     Dates: start: 20110119, end: 20110212
  15. LYRICA [Concomitant]
     Indication: POST HERPETIC NEURALGIA
     Dosage: 4 CAPSULE
     Route: 048
     Dates: start: 20110119, end: 20110211
  16. SULFAMETHOXAZOLE [Concomitant]
     Indication: PROPHYLAXIS
     Dosage: 4 TABLET
     Route: 048
     Dates: start: 20110119, end: 20110211
  17. FLUCONAZOLE [Concomitant]
     Indication: PROPHYLAXIS
     Dosage: 200 MILLIGRAM
     Route: 048
     Dates: start: 20110119, end: 20110211
  18. HUMULIN R [Concomitant]
     Indication: POST HERPETIC NEURALGIA
     Dosage: 2
     Route: 058
     Dates: start: 20110221
  19. PRONTMIN [Concomitant]
     Dosage: 10 MILLIGRAM
     Route: 041
     Dates: start: 20110224

REACTIONS (4)
  - SEPTIC SHOCK [None]
  - SINUS BRADYCARDIA [None]
  - PNEUMONIA [None]
  - HEPATIC FUNCTION ABNORMAL [None]
